FAERS Safety Report 5682374-7 (Version None)
Quarter: 2008Q1

REPORT INFORMATION
  Report Type: 
  Country: None (occurrence: None)
  Receive Date: 20080327
  Receipt Date: 20070718
  Transmission Date: 20080703
  Serious: No
  Sender: FDA-Public Use
  Company Number: US-BAUSCH-2007BL002423

PATIENT
  Age: 62 Year
  Sex: Female

DRUGS (3)
  1. IPRATROPIUM BROMIDE NASAL SOLUTION 0.03% [Suspect]
     Indication: OFF LABEL USE
     Route: 045
     Dates: start: 20070615, end: 20070615
  2. IPRATROPIUM BROMIDE NASAL SOLUTION 0.03% [Suspect]
     Indication: NASAL CONGESTION
     Route: 045
     Dates: start: 20070615, end: 20070615
  3. ZYRTEC [Concomitant]
     Indication: SEASONAL ALLERGY
     Route: 048

REACTIONS (2)
  - DRUG INEFFECTIVE FOR UNAPPROVED INDICATION [None]
  - HEADACHE [None]
